FAERS Safety Report 13461763 (Version 1)
Quarter: 2017Q2

REPORT INFORMATION
  Report Type: Spontaneous
  Country: TR (occurrence: TR)
  Receive Date: 20170420
  Receipt Date: 20170420
  Transmission Date: 20170830
  Serious: Yes (Hospitalization)
  Sender: FDA-Public Use
  Company Number: TR-GLAXOSMITHKLINE-TR2017GSK055701

PATIENT
  Age: 17 Year
  Sex: Female

DRUGS (3)
  1. ADVANTAN [Concomitant]
     Active Substance: CORTICOSTEROID NOS
     Indication: DERMATITIS CONTACT
     Dosage: UNK
     Dates: start: 20170202
  2. ALLERSET [Concomitant]
     Indication: DERMATITIS CONTACT
     Dosage: UNK
     Dates: start: 20170202
  3. CLINDOXYL [Suspect]
     Active Substance: BENZOYL PEROXIDE\CLINDAMYCIN PHOSPHATE
     Indication: ACNE
     Dosage: UNK
     Route: 061
     Dates: start: 20170202, end: 20170207

REACTIONS (4)
  - Dermatitis contact [Recovered/Resolved]
  - Face oedema [Recovered/Resolved]
  - Erythema [Recovered/Resolved]
  - Skin exfoliation [Recovered/Resolved]

NARRATIVE: CASE EVENT DATE: 20170207
